FAERS Safety Report 15780316 (Version 1)
Quarter: 2019Q1

REPORT INFORMATION
  Report Type: Spontaneous
  Country: US (occurrence: US)
  Receive Date: 20190102
  Receipt Date: 20190102
  Transmission Date: 20190417
  Serious: No
  Sender: FDA-Public Use
  Company Number: US-ACCORD-072889

PATIENT
  Sex: Female

DRUGS (4)
  1. CYMBALTA [Concomitant]
     Active Substance: DULOXETINE HYDROCHLORIDE
  2. SIMVASTATIN. [Concomitant]
     Active Substance: SIMVASTATIN
  3. ARIPIPRAZOLE. [Suspect]
     Active Substance: ARIPIPRAZOLE
     Indication: DEPRESSION
     Dosage: STRENGTH: 2 MG
     Route: 048
  4. LOSARTAN. [Concomitant]
     Active Substance: LOSARTAN

REACTIONS (6)
  - Compulsive shopping [Recovered/Resolved]
  - Hyperphagia [Recovered/Resolved]
  - Wrong technique in product usage process [Unknown]
  - Psychomotor hyperactivity [Unknown]
  - Weight increased [Recovered/Resolved]
  - Off label use [Unknown]
